FAERS Safety Report 15814765 (Version 1)
Quarter: 2019Q1

REPORT INFORMATION
  Report Type: Spontaneous
  Country: FR (occurrence: FR)
  Receive Date: 20190111
  Receipt Date: 20190111
  Transmission Date: 20190417
  Serious: Yes (Other)
  Sender: FDA-Public Use
  Company Number: FR-MYLANLABS-2019M1002177

PATIENT
  Age: 43 Year
  Sex: Female
  Weight: 115 kg

DRUGS (2)
  1. CUTACNYL [Suspect]
     Active Substance: BENZOYL PEROXIDE
     Indication: HIDRADENITIS
     Dosage: 2 DOSAGE FORM, QD
     Route: 003
     Dates: start: 20180224, end: 201804
  2. DOXYCYCLINE. [Suspect]
     Active Substance: DOXYCYCLINE
     Indication: HIDRADENITIS
     Dosage: 100 MILLIGRAM, QD
     Route: 048
     Dates: start: 20180224, end: 201804

REACTIONS (2)
  - Angioedema [Recovering/Resolving]
  - Dyspnoea [Recovering/Resolving]

NARRATIVE: CASE EVENT DATE: 201804
